FAERS Safety Report 5217767-5 (Version None)
Quarter: 2006Q4

REPORT INFORMATION
  Report Type: 
  Country: None (occurrence: None)
  Receive Date: 20061130
  Receipt Date: 20060614
  Transmission Date: 20070319
  Serious: Yes (Other)
  Sender: FDA-Public Use
  Company Number: US200606003439

PATIENT
  Age: 47 Year
  Sex: Female
  Weight: 89.8 kg

DRUGS (12)
  1. ZYPREXA [Suspect]
     Indication: BIPOLAR II DISORDER
     Dosage: SEE IMAGE
     Route: 048
     Dates: start: 20010330, end: 20010413
  2. ZYPREXA [Suspect]
     Indication: BIPOLAR II DISORDER
     Dosage: SEE IMAGE
     Route: 048
     Dates: start: 20010413, end: 20010504
  3. ZYPREXA [Suspect]
     Indication: BIPOLAR II DISORDER
     Dosage: SEE IMAGE
     Route: 048
     Dates: start: 20010504, end: 20010626
  4. ZYPREXA [Suspect]
     Indication: BIPOLAR II DISORDER
     Dosage: SEE IMAGE
     Route: 048
     Dates: end: 20041208
  5. PROZAC [Suspect]
     Indication: MOOD SWINGS
     Dosage: SEE IMAGE
     Route: 048
     Dates: start: 20010612, end: 20010619
  6. PROZAC [Suspect]
     Indication: MOOD SWINGS
     Dosage: SEE IMAGE
     Route: 048
     Dates: start: 20010620, end: 20010626
  7. PROZAC [Suspect]
     Indication: MOOD SWINGS
     Dosage: SEE IMAGE
     Route: 048
     Dates: start: 20010626, end: 20010828
  8. CYMBALTA [Suspect]
     Indication: BIPOLAR II DISORDER
     Dosage: 30 MG, EACH EVENING, ORAL
     Route: 048
     Dates: start: 20041013, end: 20041020
  9. HYDROCODONE BITARTRATE [Concomitant]
  10. TRAZODONE HCL [Concomitant]
  11. PREMARIN [Concomitant]
  12. ASPIRIN [Concomitant]

REACTIONS (14)
  - AGITATION [None]
  - APATHY [None]
  - CHOLELITHIASIS [None]
  - DIABETES MELLITUS NON-INSULIN-DEPENDENT [None]
  - HEADACHE [None]
  - HEPATIC STEATOSIS [None]
  - HEPATOMEGALY [None]
  - HYPERLIPIDAEMIA [None]
  - HYPERSOMNIA [None]
  - HYPERTRIGLYCERIDAEMIA [None]
  - MEDICATION ERROR [None]
  - MOOD ALTERED [None]
  - SEDATION [None]
  - TRANSAMINASES INCREASED [None]
